FAERS Safety Report 6955943-1 (Version None)
Quarter: 2010Q3

REPORT INFORMATION
  Report Type: 
  Country: None (occurrence: None)
  Receive Date: 20100830
  Receipt Date: 20100819
  Transmission Date: 20110219
  Serious: Yes (Hospitalization)
  Sender: FDA-Public Use
  Company Number: FR-MERCK-1008FRA00064

PATIENT
  Age: 85 Year
  Sex: Female

DRUGS (8)
  1. COZAAR [Suspect]
     Indication: HYPERTENSION
     Route: 048
  2. PIROXICAM [Suspect]
     Route: 048
     Dates: start: 20100323, end: 20100327
  3. PANTOPRAZOLE SODIUM [Concomitant]
     Route: 048
     Dates: start: 20100302, end: 20100328
  4. SERTRALINE HYDROCHLORIDE [Concomitant]
     Route: 048
  5. DIOSMIN AND HESPERIDIN [Concomitant]
     Route: 048
  6. TRIMETAZIDINE HYDROCHLORIDE [Concomitant]
     Route: 048
     Dates: end: 20100328
  7. BECLOMETHASONE DIPROPIONATE [Concomitant]
     Route: 055
     Dates: start: 20100302
  8. CALCIUM CARBONATE [Concomitant]
     Route: 065

REACTIONS (3)
  - CARDIAC FAILURE [None]
  - DRUG INTERACTION [None]
  - HYPERTENSION [None]
